FAERS Safety Report 24557428 (Version 1)
Quarter: 2024Q4

REPORT INFORMATION
  Report Type: Spontaneous
  Country: BR (occurrence: BR)
  Receive Date: 20241028
  Receipt Date: 20241028
  Transmission Date: 20250115
  Serious: Yes (Other)
  Sender: TEVA
  Company Number: BR-TEVA-VS-3256588

PATIENT
  Age: 40 Year
  Sex: Female

DRUGS (3)
  1. FENTORA [Suspect]
     Active Substance: FENTANYL CITRATE
     Indication: Breakthrough pain
     Route: 048
     Dates: start: 202312
  2. MORPHINE [Concomitant]
     Active Substance: MORPHINE
     Indication: Breakthrough pain
  3. KETAMINE [Concomitant]
     Active Substance: KETAMINE
     Indication: Breakthrough pain

REACTIONS (3)
  - Metastasis [Unknown]
  - Expired product administered [Unknown]
  - Product availability issue [Unknown]

NARRATIVE: CASE EVENT DATE: 20240101
